FAERS Safety Report 5676902-5 (Version None)
Quarter: 2008Q1

REPORT INFORMATION
  Report Type: 
  Country: None (occurrence: None)
  Receive Date: 20080324
  Receipt Date: 20080305
  Transmission Date: 20080703
  Serious: Yes (Life-Threatening, Other)
  Sender: FDA-Public Use
  Company Number: PR-MERCK-0803USA00863

PATIENT
  Age: 71 Year
  Sex: Female
  Weight: 59 kg

DRUGS (3)
  1. INVANZ [Suspect]
     Indication: SKIN ULCER
     Route: 042
     Dates: start: 20080229, end: 20080304
  2. INVANZ [Suspect]
     Indication: DIABETIC FOOT INFECTION
     Route: 042
     Dates: start: 20080229, end: 20080304
  3. CLEOCIN HYDROCHLORIDE [Concomitant]
     Indication: DIABETIC FOOT
     Route: 042
     Dates: start: 20080229, end: 20080304

REACTIONS (2)
  - GRAND MAL CONVULSION [None]
  - RESPIRATORY FAILURE [None]
